FAERS Safety Report 9562053 (Version 1)
Quarter: 2013Q3

REPORT INFORMATION
  Report Type: Spontaneous
  Country: CH (occurrence: CH)
  Receive Date: 20130927
  Receipt Date: 20130927
  Transmission Date: 20140515
  Serious: Yes (Hospitalization)
  Sender: FDA-Public Use
  Company Number: CH-PFIZER INC-2013275249

PATIENT
  Age: 79 Year
  Sex: Male
  Weight: 85 kg

DRUGS (11)
  1. LYRICA [Suspect]
     Dosage: 75 MG, 2X/DAY
     Route: 048
     Dates: end: 20130615
  2. GLUCOPHAGE [Suspect]
     Indication: DIABETES MELLITUS
     Dosage: 500 MG, UNK
     Route: 048
     Dates: start: 2007, end: 2011
  3. GLUCOPHAGE [Suspect]
     Dosage: 500 MG, UNK
     Route: 048
  4. SINTROM [Concomitant]
     Dosage: 1 MG, AS NEEDED
     Route: 048
     Dates: end: 20130615
  5. CONCOR [Concomitant]
     Dosage: 10 MG, 1X/DAY
     Route: 048
     Dates: end: 20130615
  6. APROVEL [Concomitant]
     Dosage: 300 MG, 1X/DAY
     Route: 048
     Dates: end: 20130615
  7. MODURETIC [Concomitant]
     Dosage: 0.5 DF, 1X/DAY
     Route: 048
     Dates: end: 20130615
  8. PRAVASTATIN [Concomitant]
     Dosage: 40 MG, 1X/DAY
     Route: 048
     Dates: end: 20130615
  9. VIDEX [Concomitant]
     Dosage: 250 MG, 1X/DAY
     Route: 048
     Dates: end: 20130615
  10. KALETRA [Concomitant]
     Dosage: 2 DF, 2X/DAY
     Route: 048
     Dates: end: 20130615
  11. LAMIVUDINE [Concomitant]
     Dosage: 50 MG, 1X/DAY
     Route: 048
     Dates: end: 20130615

REACTIONS (9)
  - Drug administration error [Recovered/Resolved]
  - Renal failure [Unknown]
  - Azotaemia [Unknown]
  - Lactic acidosis [Recovered/Resolved]
  - Confusional state [Recovered/Resolved]
  - Communication disorder [Not Recovered/Not Resolved]
  - Agitation [Not Recovered/Not Resolved]
  - Malaise [Unknown]
  - Drug effect increased [Recovered/Resolved]
